FAERS Safety Report 6260325-4 (Version None)
Quarter: 2009Q3

REPORT INFORMATION
  Report Type: 
  Country: None (occurrence: None)
  Receive Date: 20090708
  Receipt Date: 20090626
  Transmission Date: 20100115
  Serious: Yes (Hospitalization)
  Sender: FDA-Public Use
  Company Number: US-PFIZER INC-2009197279

PATIENT
  Sex: Male
  Weight: 85 kg

DRUGS (4)
  1. SUTENT [Suspect]
     Indication: MALIGNANT MELANOMA
     Dosage: 37.5 MG, 1X/DAY
     Route: 048
     Dates: start: 20090316, end: 20090413
  2. AVODART [Concomitant]
     Dosage: 0.5 MG, 1X/DAY
     Route: 048
  3. TERAZOSIN [Concomitant]
     Dosage: 5 MG, 1X/DAY
     Route: 048
  4. FLONASE [Concomitant]
     Route: 045

REACTIONS (3)
  - INFECTION [None]
  - NAUSEA [None]
  - VOMITING [None]
